FAERS Safety Report 19746468 (Version 2)
Quarter: 2021Q4

REPORT INFORMATION
  Report Type: Spontaneous
  Country: US (occurrence: US)
  Receive Date: 20210825
  Receipt Date: 20211227
  Transmission Date: 20220303
  Serious: Yes (Death, Other)
  Sender: FDA-Public Use
  Company Number: US-PURDUE-USA-2020-0156589

PATIENT
  Sex: Male

DRUGS (2)
  1. OXYCONTIN [Suspect]
     Active Substance: OXYCODONE HYDROCHLORIDE
     Indication: Pancreatitis chronic
     Dosage: 80 MG, TID
     Route: 048
     Dates: start: 20080408
  2. OXYCONTIN [Suspect]
     Active Substance: OXYCODONE HYDROCHLORIDE
     Dosage: 60 MG, TID
     Route: 048

REACTIONS (7)
  - Overdose [Fatal]
  - Drug dependence [Unknown]
  - Dyspnoea [Unknown]
  - Chills [Unknown]
  - Pyrexia [Unknown]
  - Tremor [Unknown]
  - Vomiting [Unknown]
